FAERS Safety Report 21926013 (Version 1)
Quarter: 2023Q1

REPORT INFORMATION
  Report Type: Spontaneous
  Country: GB (occurrence: GB)
  Receive Date: 20230130
  Receipt Date: 20230130
  Transmission Date: 20230417
  Serious: Yes (Other)
  Sender: FDA-Public Use
  Company Number: None

PATIENT
  Age: 58 Year
  Sex: Female
  Weight: 79 kg

DRUGS (22)
  1. BACLOFEN [Suspect]
     Active Substance: BACLOFEN
     Indication: Ill-defined disorder
     Dosage: AUTHORIZATION/APPLICATION NO. PL 00289/0243
     Route: 065
     Dates: start: 20230105
  2. BACLOFEN [Suspect]
     Active Substance: BACLOFEN
     Indication: Muscle spasms
  3. AMITRIPTYLINE HYDROCHLORIDE [Concomitant]
     Active Substance: AMITRIPTYLINE HYDROCHLORIDE
     Indication: Ill-defined disorder
     Dosage: 1 DOSAGE FORMS DAILY; AT NIGHT
     Dates: start: 20221230
  4. BACLOFEN [Concomitant]
     Active Substance: BACLOFEN
     Indication: Ill-defined disorder
     Dosage: TAKE ONE UP TO 3 TIMES/DAY AS NEEDED FOR BACK S
     Dates: start: 20230103, end: 20230115
  5. CLOTRIMAZOLE [Concomitant]
     Active Substance: CLOTRIMAZOLE
     Indication: Ill-defined disorder
     Dosage: APPLY TWO TO THREE TIMES DAILY,
     Dates: start: 20221129, end: 20221204
  6. DIAZEPAM [Concomitant]
     Active Substance: DIAZEPAM
     Indication: Ill-defined disorder
     Dosage: 2 DOSAGE FORMS DAILY;   AT NIGHT
     Dates: start: 20220921
  7. DIHYDROCODEINE [Concomitant]
     Active Substance: DIHYDROCODEINE
     Indication: Ill-defined disorder
     Dosage: 1 DOSAGE FORMS DAILY; TAKE ONE AT NIGHT OR AS ADVISED.
     Dates: start: 20220921
  8. DOCUSATE SODIUM [Concomitant]
     Active Substance: DOCUSATE SODIUM
     Indication: Ill-defined disorder
     Dates: start: 20220921
  9. DOCUSATE SODIUM [Concomitant]
     Active Substance: DOCUSATE SODIUM
     Indication: Faeces hard
  10. GLYCERIN [Concomitant]
     Active Substance: GLYCERIN
     Indication: Ill-defined disorder
     Dosage: INSERT ONE IF NEEDED
     Dates: start: 20220921
  11. GLYCERIN [Concomitant]
     Active Substance: GLYCERIN
     Indication: Constipation
  12. HYDROCORTISONE [Concomitant]
     Active Substance: HYDROCORTISONE
     Indication: Ill-defined disorder
     Dosage: APPLY
     Dates: start: 20221129, end: 20221130
  13. LANSOPRAZOLE [Concomitant]
     Active Substance: LANSOPRAZOLE
     Indication: Ill-defined disorder
     Dosage: 1 DOSAGE FORMS DAILY;   IN THE MORNING TO REDUCE ST
     Dates: start: 20220921
  14. LEVOTHYROXINE [Concomitant]
     Active Substance: LEVOTHYROXINE
     Indication: Ill-defined disorder
     Dosage: 1 DOSAGE FORMS DAILY;   EACH NIGHT
     Dates: start: 20220921
  15. NITROFURANTOIN [Concomitant]
     Active Substance: NITROFURANTOIN
     Indication: Ill-defined disorder
     Dosage: 2 DOSAGE FORMS DAILY;
     Dates: start: 20221103, end: 20221110
  16. ACETAMINOPHEN [Concomitant]
     Active Substance: ACETAMINOPHEN
     Indication: Ill-defined disorder
     Dosage: TAKE ONE OR TWO TABLETS FOUR TIMES DAILY
     Dates: start: 20220921
  17. PAROXETINE [Concomitant]
     Active Substance: PAROXETINE
     Indication: Ill-defined disorder
     Dosage: 2 DOSAGE FORMS DAILY;   IN THE MORNING
     Dates: start: 20220921
  18. PAROXETINE [Concomitant]
     Active Substance: PAROXETINE
     Indication: Depression
  19. QUETIAPINE [Concomitant]
     Active Substance: QUETIAPINE
     Indication: Ill-defined disorder
     Dosage: 1 DOSAGE FORMS DAILY;  AT NIGHT
     Dates: start: 20220921
  20. SENNA [Concomitant]
     Active Substance: SENNA LEAF\SENNOSIDES\SENNOSIDES A AND B
     Indication: Ill-defined disorder
     Dosage: TAKE ONE TO TWO TABLETS AT NIGHT
     Dates: start: 20220921
  21. TEMAZEPAM [Concomitant]
     Active Substance: TEMAZEPAM
     Indication: Ill-defined disorder
     Dosage: 2 DOSAGE FORMS DAILY;   EACH NIGHT
     Dates: start: 20220921
  22. TRAMADOL [Concomitant]
     Active Substance: TRAMADOL
     Indication: Ill-defined disorder
     Dosage: 1 DOSAGE FORMS DAILY;
     Dates: start: 20221216, end: 20221231

REACTIONS (1)
  - Acute psychosis [Recovered/Resolved]

NARRATIVE: CASE EVENT DATE: 20230105
